FAERS Safety Report 4896346-3 (Version None)
Quarter: 2006Q1

REPORT INFORMATION
  Report Type: 
  Country: None (occurrence: None)
  Receive Date: 20060126
  Receipt Date: 20060110
  Transmission Date: 20060701
  Serious: Yes (Death, Hospitalization, Other)
  Sender: FDA-Public Use
  Company Number: 200601IM000087

PATIENT
  Age: 12 Year
  Sex: Male

DRUGS (11)
  1. INTERERON GAMMA-1B [Suspect]
     Indication: MYCOBACTERIUM ABSCESSUS INFECTION
     Dosage: TIW, SUBCUTANEOUS
     Route: 058
  2. CLARITHROMYCIN [Suspect]
     Indication: MYCOBACTERIUM AVIUM COMPLEX INFECTION
     Dosage: REPEATED CYCLES OF A 4-DRUG
  3. ETHAMBUTOL [Suspect]
     Dosage: REPATED CYCLES OF A 4-DRUG
  4. RIFABUTIN [Suspect]
     Indication: MYCOBACTERIUM AVIUM COMPLEX INFECTION
     Dosage: REPATED CYCLES OF A 4-DRUG
  5. AMIKACIN [Suspect]
     Indication: MYCOBACTERIUM AVIUM COMPLEX INFECTION
     Dosage: REPATED CYCLES OF A 4-DRUG
  6. AMOXICILLIN [Concomitant]
  7. SULBACTAM [Concomitant]
  8. CEFUROXIME [Concomitant]
  9. ACETYLCYSTEINE [Concomitant]
  10. ACYCLOVIR [Concomitant]
  11. CIPROFLOXACIN [Concomitant]

REACTIONS (15)
  - ANAEMIA HAEMOLYTIC AUTOIMMUNE [None]
  - ASTHENIA [None]
  - BODY TEMPERATURE INCREASED [None]
  - COUGH [None]
  - CYANOSIS [None]
  - ENCEPHALITIS HERPES [None]
  - ENTERITIS [None]
  - FATIGUE [None]
  - GENE MUTATION [None]
  - GENERAL PHYSICAL CONDITION ABNORMAL [None]
  - HERPES SIMPLEX [None]
  - LUNG DISORDER [None]
  - MYCOBACTERIAL INFECTION [None]
  - NEUROLOGICAL SYMPTOM [None]
  - SKIN ULCER [None]
